FAERS Safety Report 8281386-7 (Version None)
Quarter: 2012Q2

REPORT INFORMATION
  Report Type: 
  Country: None (occurrence: None)
  Receive Date: 20120410
  Receipt Date: 20120410
  Transmission Date: 20120825
  Serious: Yes (Life-Threatening, Hospitalization)
  Sender: FDA-Public Use
  Company Number: None

PATIENT
  Sex: Male
  Weight: 83.9154 kg

DRUGS (1)
  1. AZATHIOPRINE [Suspect]
     Indication: RASH
     Dosage: ONE TABLET DAILY
     Dates: start: 20120208, end: 20120210

REACTIONS (6)
  - DYSPNOEA [None]
  - SWOLLEN TONGUE [None]
  - SWELLING FACE [None]
  - PHARYNGEAL OEDEMA [None]
  - ASTHENIA [None]
  - MUSCULAR WEAKNESS [None]
